FAERS Safety Report 4449219-4 (Version None)
Quarter: 2004Q3

REPORT INFORMATION
  Report Type: 
  Country: None (occurrence: None)
  Receive Date: 20040910
  Receipt Date: 20040901
  Transmission Date: 20050211
  Serious: Yes (Hospitalization)
  Sender: FDA-Public Use
  Company Number: RENA-11115

PATIENT
  Age: 44 Year
  Sex: Male

DRUGS (12)
  1. PHOSBLOCK - 250 MG TABLETS [Suspect]
     Indication: HYPERPHOSPHATAEMIA
     Dosage: 0.75 G TID PO
     Route: 048
     Dates: start: 20040516, end: 20040529
  2. PHOSBLOCK - 250 MG TABLETS [Suspect]
     Indication: HYPERPHOSPHATAEMIA
     Dosage: 0.5 G TID PO
     Route: 048
     Dates: start: 20040508, end: 20040515
  3. CALCIUM CARBONATE [Concomitant]
  4. ALUMINUM HYDROXIDE [Concomitant]
  5. MAGNESIUM HYDROXIDE TAB [Concomitant]
  6. VALSARTAN [Concomitant]
  7. AMLODIPINE BESYLATE [Concomitant]
  8. ATENOLOL [Concomitant]
  9. POLAPREZINC [Concomitant]
  10. RABEPRAZOLE SODIUM [Concomitant]
  11. NIFEDIPINE [Concomitant]
  12. VITAMIN D [Concomitant]

REACTIONS (1)
  - INTESTINAL OBSTRUCTION [None]
